FAERS Safety Report 9287146 (Version 2)
Quarter: 2013Q3

REPORT INFORMATION
  Report Type: Report from Study
  Country: JP (occurrence: JP)
  Receive Date: 20130513
  Receipt Date: 20130802
  Transmission Date: 20140515
  Serious: Yes (Life-Threatening, Hospitalization, Other)
  Sender: FDA-Public Use
  Company Number: JP-MERCK-1205USA02462

PATIENT
  Age: 79 Year
  Sex: Male

DRUGS (21)
  1. GLACTIV [Suspect]
     Indication: TYPE 2 DIABETES MELLITUS
     Dosage: 50 MG, QD
     Route: 048
     Dates: start: 20110225, end: 20110520
  2. GLACTIV [Suspect]
     Dosage: 50 MG, QD
     Route: 048
     Dates: start: 20110817, end: 20120820
  3. REZALTAS [Concomitant]
     Dosage: UNK
     Dates: start: 20110128, end: 20110518
  4. REZALTAS [Concomitant]
     Dosage: UNK
     Dates: start: 20110817, end: 20111205
  5. MAINTATE [Concomitant]
     Dosage: UNK
     Dates: start: 20110128, end: 20110518
  6. MAINTATE [Concomitant]
     Dosage: UNK
     Dates: start: 20110817, end: 20111205
  7. OMEPRAL [Concomitant]
     Dosage: UNK
     Dates: start: 20110325, end: 20110518
  8. OMEPRAL [Concomitant]
     Dosage: UNK
     Dates: start: 20110817, end: 20120820
  9. CRESTOR [Concomitant]
     Dosage: UNK
     Dates: start: 20110225, end: 20110518
  10. CRESTOR [Concomitant]
     Dosage: UNK
     Dates: start: 20110912, end: 20120820
  11. ARICEPT [Concomitant]
     Dosage: UNK
     Dates: start: 20120116, end: 20120820
  12. OLMETEC [Concomitant]
     Dosage: UNK
     Dates: start: 20111205, end: 20120820
  13. OLMETEC [Concomitant]
     Dosage: 5 MG
     Dates: start: 20120409, end: 20120514
  14. OLMETEC [Concomitant]
     Dosage: 20 MG
     Dates: start: 20120515
  15. ANTUP R [Concomitant]
     Dosage: UNK
     Dates: start: 20111205, end: 20120820
  16. SIGMART [Concomitant]
     Dosage: UNK
     Dates: start: 20111205, end: 20120820
  17. HOKUNALIN [Concomitant]
     Dosage: 2 MG, QD
     Dates: start: 20110422, end: 20110520
  18. HOKUNALIN [Concomitant]
     Dosage: UNK
     Dates: start: 20120130, end: 20120514
  19. PLETAAL [Concomitant]
     Dosage: UNK
     Dates: start: 20120312, end: 20120823
  20. MEMARY [Concomitant]
     Dosage: UNK
     Dates: start: 20120312, end: 20120823
  21. SYMBICORT [Concomitant]
     Dosage: 2 INHALATIONS, BID
     Dates: start: 20120130, end: 20120409

REACTIONS (2)
  - Dysphagia [Unknown]
  - Status asthmaticus [Recovered/Resolved]
